FAERS Safety Report 9293494 (Version 2)
Quarter: 2013Q2

REPORT INFORMATION
  Report Type: Spontaneous
  Country: TR (occurrence: TR)
  Receive Date: 20130516
  Receipt Date: 20130522
  Transmission Date: 20140414
  Serious: Yes (Hospitalization, Other)
  Sender: FDA-Public Use
  Company Number: PHHY2013TR047181

PATIENT
  Age: 24 Year
  Sex: Female

DRUGS (2)
  1. VALPROIC ACID [Suspect]
     Indication: EPILEPSY
     Dosage: 1 G, QD
  2. VALPROIC ACID [Suspect]
     Dosage: 20000 MG, UNK

REACTIONS (7)
  - Brain oedema [Recovered/Resolved]
  - Pancreatitis acute [Recovered/Resolved]
  - Thrombocytopenia [Recovered/Resolved]
  - Coma [Recovered/Resolved]
  - Stupor [Recovered/Resolved]
  - Pupillary reflex impaired [Recovered/Resolved]
  - Overdose [Unknown]
